FAERS Safety Report 8190230-8 (Version None)
Quarter: 2012Q1

REPORT INFORMATION
  Report Type: 
  Country: None (occurrence: None)
  Receive Date: 20120221
  Receipt Date: 20120103
  Transmission Date: 20120608
  Serious: No
  Sender: FDA-Public Use
  Company Number: 1000026715

PATIENT
  Age: 50 Year
  Sex: Female

DRUGS (6)
  1. VIIBRYD [Suspect]
     Indication: DEPRESSION
     Dosage: 10 MG (10 MG, 1 IN 1 D),ORAL
     Route: 048
     Dates: start: 20111101, end: 20110101
  2. LITHIUM CARBONATE [Concomitant]
  3. BUSPAR (BUSPIRONE HYDROCHLORIDE)(BUSPIRONE HYDROCHLORIDE) [Concomitant]
  4. VIIBRYD [Suspect]
     Indication: DEPRESSION
     Dosage: 20 MG (20 MG, 1 IN 1 D),ORAL
     Route: 048
     Dates: start: 20110101, end: 20111201
  5. DEPAKOTE [Concomitant]
  6. DILAUDID (HYDROMORPHONE HYDROCHLORIDE)(HYDROMORPHONE HYDROCHLORIDE) [Concomitant]

REACTIONS (5)
  - GAIT DISTURBANCE [None]
  - HEADACHE [None]
  - PYREXIA [None]
  - CONFUSIONAL STATE [None]
  - HALLUCINATION, AUDITORY [None]
